FAERS Safety Report 8517418-8 (Version None)
Quarter: 2012Q3

REPORT INFORMATION
  Report Type: 
  Country: None (occurrence: None)
  Receive Date: 20120718
  Receipt Date: 20120712
  Transmission Date: 20120928
  Serious: No
  Sender: FDA-Public Use
  Company Number: US-PFIZER INC-2012168372

PATIENT
  Sex: Female
  Weight: 72.562 kg

DRUGS (2)
  1. LYRICA [Suspect]
     Indication: FIBROMYALGIA
     Dosage: 150 MG, 2X/DAY
     Route: 048
     Dates: start: 20110101
  2. ADDERALL 5 [Concomitant]
     Dosage: UNK

REACTIONS (5)
  - NERVOUSNESS [None]
  - FEAR [None]
  - WITHDRAWAL SYNDROME [None]
  - DISORIENTATION [None]
  - PANIC DISORDER [None]
